FAERS Safety Report 14315094 (Version 3)
Quarter: 2019Q4

REPORT INFORMATION
  Report Type: Report from Study
  Country: DE (occurrence: DE)
  Receive Date: 20171221
  Receipt Date: 20191220
  Transmission Date: 20200122
  Serious: Yes (Hospitalization, Other)
  Sender: FDA-Public Use
  Company Number: DE-MYLANLABS-2017M1079868

PATIENT
  Age: 79 Year
  Sex: Female
  Weight: 67 kg

DRUGS (22)
  1. FLUOROURACIL. [Suspect]
     Active Substance: FLUOROURACIL
     Dosage: 5160 MG, UNK
     Route: 042
     Dates: start: 20130502, end: 20130504
  2. AVASTIN [Suspect]
     Active Substance: BEVACIZUMAB
     Indication: COLORECTAL CANCER METASTATIC
     Dosage: 335 MG, Q3W
     Route: 042
     Dates: start: 20130502
  3. OXALIPLATIN. [Suspect]
     Active Substance: OXALIPLATIN
     Indication: COLORECTAL CANCER METASTATIC
     Dosage: 146.2 -110MG, BIWEEKLY
     Route: 042
     Dates: start: 20130502, end: 20130516
  4. BISOHEXAL [Concomitant]
     Active Substance: BISOPROLOL FUMARATE
     Indication: HYPERTENSION
     Dosage: 5 MG, QD
     Route: 048
  5. DIOVAN [Concomitant]
     Active Substance: VALSARTAN
     Indication: HYPERTENSION
     Dosage: 160 MG, QD
     Route: 048
  6. XELODA [Suspect]
     Active Substance: CAPECITABINE
     Dosage: ON DAYS 1-14 OF 3 WEEK CYCLE
     Route: 048
     Dates: start: 20130611, end: 20130627
  7. MONO-EMBOLEX [Concomitant]
     Active Substance: CERTOPARIN SODIUM
     Indication: THROMBOSIS PROPHYLAXIS
     Dosage: 16000 INTERNATIONAL UNIT
     Route: 058
     Dates: start: 201304, end: 20130620
  8. CONCOR [Concomitant]
     Active Substance: BISOPROLOL FUMARATE
     Indication: HYPERTENSION
     Dosage: 2.5 MILLIGRAM, QD
     Route: 065
  9. OXALIPLATIN. [Suspect]
     Active Substance: OXALIPLATIN
     Dosage: DAILY DOSE: 167.7 MG MILLIGRAM(S) EVERY 3 WEEK
     Route: 042
     Dates: start: 20130530, end: 20130620
  10. AVASTIN [Suspect]
     Active Substance: BEVACIZUMAB
     Dosage: 502.5 MG, Q3W, DAILY DOSE: 502.5 MG MILLIGRAM(S) EVERY 3 WEEK
     Route: 042
     Dates: start: 20130620
  11. XELODA [Suspect]
     Active Substance: CAPECITABINE
     Indication: COLORECTAL CANCER METASTATIC
     Dosage: ON DAY 1-4 OF 3 WEEK CYCLE
     Route: 048
     Dates: start: 20130620, end: 20130706
  12. CONCOR [Concomitant]
     Active Substance: BISOPROLOL FUMARATE
     Dosage: 5 MG, QD
  13. FERRO SANOL [Concomitant]
     Active Substance: FERROUS GLYCINE SULFATE
     Indication: IRON DEFICIENCY
     Dosage: 100 MG, QD
     Route: 048
  14. PANTOZOL [Concomitant]
     Active Substance: PANTOPRAZOLE SODIUM
     Indication: PROPHYLAXIS
     Dosage: 40 MG, QD
     Route: 048
  15. FLUOROURACIL. [Suspect]
     Active Substance: FLUOROURACIL
     Indication: COLORECTAL CANCER METASTATIC
     Dosage: 5160 MG, UNK
     Route: 041
     Dates: start: 20130502, end: 20130504
  16. HEPARIN [Concomitant]
     Active Substance: HEPARIN SODIUM
     Indication: THROMBOSIS PROPHYLAXIS
     Dosage: UNK
     Route: 065
     Dates: start: 201307, end: 201307
  17. FLUOROURACIL. [Suspect]
     Active Substance: FLUOROURACIL
     Dosage: 161.25 MG, UNK
     Route: 041
     Dates: start: 20130516, end: 20130516
  18. OXALIPLATIN. [Suspect]
     Active Substance: OXALIPLATIN
     Dosage: DAILY DOSE: 167.7 MG MILLIGRAM(S) EVERY 3 WEEK
     Route: 042
     Dates: start: 20130620
  19. XELODA [Suspect]
     Active Substance: CAPECITABINE
     Dosage: 2600, 1300 MG DOSE, UNK
     Route: 048
     Dates: start: 20130530, end: 20130627
  20. ACETYLSALICYLIC ACID [Concomitant]
     Active Substance: ASPIRIN
     Indication: PRODUCT USED FOR UNKNOWN INDICATION
     Dosage: UNK
     Route: 065
     Dates: start: 201307, end: 201308
  21. DIOVAN [Concomitant]
     Active Substance: VALSARTAN
     Dosage: 320 MG, QD
     Route: 048
  22. XELODA [Suspect]
     Active Substance: CAPECITABINE
     Dosage: ON DAYS 1-14 OF 3 WEEK CYCLE
     Route: 048
     Dates: start: 20130530, end: 20130601

REACTIONS (5)
  - Paraesthesia [Not Recovered/Not Resolved]
  - Vomiting [Recovered/Resolved]
  - Diarrhoea [Recovered/Resolved]
  - Renal failure [Recovered/Resolved]
  - Dehydration [Recovered/Resolved]

NARRATIVE: CASE EVENT DATE: 20130504
